FAERS Safety Report 25765623 (Version 1)
Quarter: 2025Q3

REPORT INFORMATION
  Report Type: Spontaneous
  Country: SG (occurrence: SG)
  Receive Date: 20250905
  Receipt Date: 20250905
  Transmission Date: 20251021
  Serious: Yes (Other)
  Sender: ABBVIE
  Company Number: SG-LUNDBECK-DKLU4018632

PATIENT
  Age: 22 Year

DRUGS (1)
  1. ESCITALOPRAM [Suspect]
     Active Substance: ESCITALOPRAM OXALATE
     Indication: Product used for unknown indication
     Route: 048

REACTIONS (2)
  - Polyuria [Unknown]
  - Urinary incontinence [Unknown]
